FAERS Safety Report 20408902 (Version 1)
Quarter: 2022Q1

REPORT INFORMATION
  Report Type: Spontaneous
  Country: JP (occurrence: JP)
  Receive Date: 20220201
  Receipt Date: 20220201
  Transmission Date: 20220423
  Serious: Yes (Other)
  Sender: FDA-Public Use
  Company Number: JP-MSD-M2022-01953

PATIENT
  Age: 84 Year
  Sex: Male

DRUGS (6)
  1. MOLNUPIRAVIR [Suspect]
     Active Substance: MOLNUPIRAVIR
     Indication: COVID-19
     Dosage: 800 MILLIGRAM, BID
     Route: 048
     Dates: start: 20220114, end: 20220115
  2. REMDESIVIR [Concomitant]
     Active Substance: REMDESIVIR
     Dosage: UNK
     Route: 065
  3. IRBESARTAN\TRICHLORMETHIAZIDE [Concomitant]
     Active Substance: IRBESARTAN\TRICHLORMETHIAZIDE
     Dosage: UNK
     Route: 065
  4. AZELNIDIPINE [Concomitant]
     Active Substance: AZELNIDIPINE
     Dosage: 16 MILLIGRAM
     Route: 048
  5. GLYCOPYRRONIUM\INDACATEROL [Concomitant]
     Active Substance: GLYCOPYRRONIUM\INDACATEROL
     Dosage: UNK
     Route: 055
  6. CALONAL [Concomitant]
     Active Substance: ACETAMINOPHEN
     Dosage: UNK
     Route: 065

REACTIONS (2)
  - Blood creatine phosphokinase increased [Recovered/Resolved]
  - Pyrexia [Unknown]

NARRATIVE: CASE EVENT DATE: 20220101
